FAERS Safety Report 11019259 (Version 2)
Quarter: 2015Q2

REPORT INFORMATION
  Report Type: Spontaneous
  Country: US (occurrence: US)
  Receive Date: 20150412
  Receipt Date: 20150525
  Transmission Date: 20150821
  Serious: No
  Sender: FDA-Public Use
  Company Number: US-JNJFOC-20131205668

PATIENT
  Age: 70 Year
  Sex: Female
  Weight: 77.11 kg

DRUGS (2)
  1. LEVAQUIN [Suspect]
     Active Substance: LEVOFLOXACIN
     Indication: INFECTION
     Route: 048
     Dates: start: 2012, end: 2012
  2. LEVAQUIN [Suspect]
     Active Substance: LEVOFLOXACIN
     Indication: KNEE ARTHROPLASTY
     Route: 048
     Dates: start: 2012, end: 2012

REACTIONS (2)
  - Pain [Not Recovered/Not Resolved]
  - Muscular weakness [Not Recovered/Not Resolved]

NARRATIVE: CASE EVENT DATE: 2012
